FAERS Safety Report 13221869 (Version 1)
Quarter: 2017Q1

REPORT INFORMATION
  Report Type: Spontaneous
  Country: CA (occurrence: CA)
  Receive Date: 20170211
  Receipt Date: 20170211
  Transmission Date: 20170428
  Serious: Yes (Life-Threatening, Other)
  Sender: FDA-Public Use
  Company Number: CA-SUNOVION-2017SUN000564

PATIENT

DRUGS (5)
  1. APTIOM [Suspect]
     Active Substance: ESLICARBAZEPINE ACETATE
     Dosage: 800 MG, UNK
     Route: 048
  2. APTIOM [Suspect]
     Active Substance: ESLICARBAZEPINE ACETATE
     Indication: SEIZURE
     Dosage: 400 MG, UNK
     Route: 048
  3. CLOBAZAM [Suspect]
     Active Substance: CLOBAZAM
     Indication: PRODUCT USED FOR UNKNOWN INDICATION
     Dosage: 10 MG, QD
  4. VALPROATE SEMISODIUM [Suspect]
     Active Substance: DIVALPROEX SODIUM
     Indication: PRODUCT USED FOR UNKNOWN INDICATION
     Dosage: UNK, BID
  5. LAMOTRIGINE. [Suspect]
     Active Substance: LAMOTRIGINE
     Indication: PRODUCT USED FOR UNKNOWN INDICATION
     Dosage: 100 MG, BID

REACTIONS (2)
  - Coma [Recovered/Resolved]
  - Drug interaction [Recovered/Resolved]
